FAERS Safety Report 20158460 (Version 2)
Quarter: 2022Q1

REPORT INFORMATION
  Report Type: Spontaneous
  Country: JP (occurrence: JP)
  Receive Date: 20211207
  Receipt Date: 20220120
  Transmission Date: 20220423
  Serious: Yes (Other)
  Sender: FDA-Public Use
  Company Number: JP-EAGLE PHARMACEUTICALS, INC.-JP-2021EAG000288

PATIENT
  Age: 73 Year
  Sex: Male

DRUGS (28)
  1. BENDAMUSTINE HYDROCHLORIDE [Suspect]
     Active Substance: BENDAMUSTINE HYDROCHLORIDE
     Indication: Follicular lymphoma
     Dosage: 110 MG, (CYCLE 1 GB THERAPY)
     Route: 041
  2. BENDAMUSTINE HYDROCHLORIDE [Suspect]
     Active Substance: BENDAMUSTINE HYDROCHLORIDE
     Indication: Diffuse large B-cell lymphoma
     Dosage: 110 MG, (CYCLE 2 GB THERAPY)
     Route: 041
  3. BENDAMUSTINE HYDROCHLORIDE [Suspect]
     Active Substance: BENDAMUSTINE HYDROCHLORIDE
     Dosage: 110 MG, (CYCLE 3 GB THERAPY)
     Route: 041
  4. BENDAMUSTINE HYDROCHLORIDE [Suspect]
     Active Substance: BENDAMUSTINE HYDROCHLORIDE
     Dosage: 110 MG, (CYCLE 4 GB THERAPY)
     Route: 041
  5. BENDAMUSTINE HYDROCHLORIDE [Suspect]
     Active Substance: BENDAMUSTINE HYDROCHLORIDE
     Dosage: 110 MG, (CYCLE 5 GB THERAPY)
     Route: 041
  6. BENDAMUSTINE HYDROCHLORIDE [Suspect]
     Active Substance: BENDAMUSTINE HYDROCHLORIDE
     Dosage: 60 MG/M2, (CYCLE 1 PBR THERAPY)
     Route: 041
     Dates: start: 20210805
  7. BENDAMUSTINE HYDROCHLORIDE [Suspect]
     Active Substance: BENDAMUSTINE HYDROCHLORIDE
     Dosage: 60 MG/M2, (CYCLE 2 PBR THERAPY)
     Route: 041
     Dates: start: 20210825
  8. BENDAMUSTINE HYDROCHLORIDE [Suspect]
     Active Substance: BENDAMUSTINE HYDROCHLORIDE
     Dosage: 60 MG/M2, (CYCLE 3 PBR THERAPY)
     Route: 041
     Dates: start: 20210914
  9. BENDAMUSTINE HYDROCHLORIDE [Suspect]
     Active Substance: BENDAMUSTINE HYDROCHLORIDE
     Dosage: 60 MG/M2, (CYCLE 4 PBR THERAPY)
     Route: 041
     Dates: start: 20211005
  10. BENDAMUSTINE HYDROCHLORIDE [Suspect]
     Active Substance: BENDAMUSTINE HYDROCHLORIDE
     Dosage: 60 MG/M2, (CYCLE 5 PBR THERAPY)
     Route: 041
     Dates: start: 20211026
  11. BENDAMUSTINE HYDROCHLORIDE [Suspect]
     Active Substance: BENDAMUSTINE HYDROCHLORIDE
     Dosage: 60 MG/M2, (CYCLE 6 PBR THERAPY)
     Route: 041
     Dates: start: 20211117
  12. GAZYVA [Concomitant]
     Active Substance: OBINUTUZUMAB
     Indication: Follicular lymphoma
     Dosage: UNK, (CYCLE 1 GB THERAPY)
     Route: 041
  13. GAZYVA [Concomitant]
     Active Substance: OBINUTUZUMAB
     Dosage: UNK, (CYCLE 2 GB THERAPY)
     Route: 041
  14. GAZYVA [Concomitant]
     Active Substance: OBINUTUZUMAB
     Dosage: UNK, (CYCLE 3 GB THERAPY)
     Route: 041
  15. GAZYVA [Concomitant]
     Active Substance: OBINUTUZUMAB
     Dosage: UNK, (CYCLE 4 GB THERAPY)
     Route: 041
  16. GAZYVA [Concomitant]
     Active Substance: OBINUTUZUMAB
     Dosage: UNK, (CYCLE 5 GB THERAPY)
     Route: 041
  17. RITUXAN [Concomitant]
     Active Substance: RITUXIMAB
     Indication: Diffuse large B-cell lymphoma
     Dosage: 660 MG, (CYCLE 1 PBR THERAPY)
     Route: 041
     Dates: start: 20210805
  18. RITUXAN [Concomitant]
     Active Substance: RITUXIMAB
     Dosage: 660 MG, (CYCLE 2 PBR THERAPY
     Route: 041
     Dates: start: 20210825
  19. RITUXAN [Concomitant]
     Active Substance: RITUXIMAB
     Dosage: 660 MG, (CYCLE 3 PBR THERAPY
     Route: 041
     Dates: start: 20210914
  20. RITUXAN [Concomitant]
     Active Substance: RITUXIMAB
     Dosage: 660 MG, (CYCLE 4 PBR THERAPY
     Route: 041
     Dates: start: 20211005
  21. RITUXAN [Concomitant]
     Active Substance: RITUXIMAB
     Dosage: 660 MG, (CYCLE 5 PBR THERAPY
     Route: 041
     Dates: start: 20211026
  22. RITUXAN [Concomitant]
     Active Substance: RITUXIMAB
     Dosage: 660 MG, (CYCLE 6 PBR THERAPY
     Route: 041
     Dates: start: 20211116
  23. POLIVY [Concomitant]
     Active Substance: POLATUZUMAB VEDOTIN-PIIQ
     Indication: Diffuse large B-cell lymphoma
     Dosage: 110 MG, (CYCLE 1 PBR THERAPY)
     Route: 041
     Dates: start: 20210806
  24. POLIVY [Concomitant]
     Active Substance: POLATUZUMAB VEDOTIN-PIIQ
     Dosage: 110 MG, (CYCLE 2 PBR THERAPY
     Route: 041
     Dates: start: 20210825
  25. POLIVY [Concomitant]
     Active Substance: POLATUZUMAB VEDOTIN-PIIQ
     Dosage: 110 MG, (CYCLE 3 PBR THERAPY
     Route: 041
     Dates: start: 20210914
  26. POLIVY [Concomitant]
     Active Substance: POLATUZUMAB VEDOTIN-PIIQ
     Dosage: 110 MG, (CYCLE 4 PBR THERAPY
     Route: 041
     Dates: start: 20211005
  27. POLIVY [Concomitant]
     Active Substance: POLATUZUMAB VEDOTIN-PIIQ
     Dosage: 110 MG, (CYCLE 5 PBR THERAPY
     Route: 041
     Dates: start: 20211026
  28. POLIVY [Concomitant]
     Active Substance: POLATUZUMAB VEDOTIN-PIIQ
     Dosage: 110 MG, (CYCLE 6 PBR THERAPY
     Route: 041
     Dates: start: 20211117

REACTIONS (6)
  - Neutropenia [Unknown]
  - Febrile neutropenia [Unknown]
  - Thrombocytopenia [Unknown]
  - Neuropathy peripheral [Unknown]
  - Anaemia [Unknown]
  - Nausea [Unknown]

NARRATIVE: CASE EVENT DATE: 20210101
